FAERS Safety Report 7080017-1 (Version None)
Quarter: 2010Q4

REPORT INFORMATION
  Report Type: 
  Country: None (occurrence: None)
  Receive Date: 20101102
  Receipt Date: 20100108
  Transmission Date: 20110411
  Serious: No
  Sender: FDA-Public Use
  Company Number: US-ABBOTT-09P-163-0615087-00

PATIENT
  Sex: Female

DRUGS (2)
  1. BIAXIN [Suspect]
     Indication: PNEUMONIA
     Dates: start: 20070101, end: 20070101
  2. AMOXICILLIN [Concomitant]
     Indication: PNEUMONIA
     Dates: start: 20070101, end: 20070101

REACTIONS (1)
  - GASTRIC DISORDER [None]
